FAERS Safety Report 5932831-0 (Version None)
Quarter: 2008Q4

REPORT INFORMATION
  Report Type: 
  Country: None (occurrence: None)
  Receive Date: 20081027
  Receipt Date: 20081027
  Transmission Date: 20090506
  Serious: Yes (Hospitalization)
  Sender: FDA-Public Use
  Company Number: None

PATIENT
  Sex: Male
  Weight: 63.2 kg

DRUGS (11)
  1. CYCLOPHOSPHAMIDE [Suspect]
     Dosage: 2576 MG
  2. DOXORUBICIN HYDROCHLORIDE [Suspect]
     Dosage: 137.2 MG
  3. ETOPOSIDE [Suspect]
     Dosage: 688 MG
  4. PREDNISONE TAB [Suspect]
     Dosage: 990 MG
  5. RITUXIMAB (MOAB C2B8 ANTI CD20, CHIMERIC) [Suspect]
     Dosage: 621 MG
  6. VINCRISTINE SULFATE [Suspect]
     Dosage: 2.8 MG
  7. ALLOPURINOL [Concomitant]
  8. BACTRIM DS [Concomitant]
  9. COMPAZINE [Concomitant]
  10. LACTULOSE [Concomitant]
  11. PREVACID [Concomitant]

REACTIONS (5)
  - ABSCESS JAW [None]
  - COMPUTERISED TOMOGRAM ABNORMAL [None]
  - FEBRILE NEUTROPENIA [None]
  - ORAL CANDIDIASIS [None]
  - TOOTH ABSCESS [None]
